FAERS Safety Report 23623802 (Version 2)
Quarter: 2024Q1

REPORT INFORMATION
  Report Type: Other
  Country: US (occurrence: US)
  Receive Date: 20240312
  Receipt Date: 20240313
  Transmission Date: 20240410
  Serious: Yes (Hospitalization, Other)
  Sender: FDA-Public Use
  Company Number: US-HLS-202400071

PATIENT
  Age: 55 Year
  Sex: Female

DRUGS (5)
  1. CLOZAPINE [Suspect]
     Active Substance: CLOZAPINE
     Indication: Product used for unknown indication
     Dosage: 100 MG TO 50 MG NIGHTLY
     Route: 065
  2. BUPROPION [Suspect]
     Active Substance: BUPROPION
     Indication: Product used for unknown indication
     Dosage: 150 MG TO 300 MG DAILY
     Route: 065
  3. DEUTETRABENAZINE [Suspect]
     Active Substance: DEUTETRABENAZINE
     Indication: Product used for unknown indication
     Dosage: 12 MG TO 24 MG DAILY
     Route: 065
  4. PROPRANOLOL [Suspect]
     Active Substance: PROPRANOLOL HYDROCHLORIDE
     Indication: Product used for unknown indication
     Dosage: 10 MG TO 20 MG DAILY
     Route: 065
  5. LITHIUM [Suspect]
     Active Substance: LITHIUM
     Indication: Product used for unknown indication
     Dosage: 600 MG TO 900 MG DAILY
     Route: 065

REACTIONS (11)
  - Ataxia [Recovering/Resolving]
  - Bradycardia [Recovering/Resolving]
  - Confusional state [Recovering/Resolving]
  - Blood creatinine increased [Recovering/Resolving]
  - Dizziness [Recovering/Resolving]
  - Toxicity to various agents [Recovered/Resolved]
  - Chronic kidney disease [Recovering/Resolving]
  - Blood prolactin increased [Recovering/Resolving]
  - Electrocardiogram QT prolonged [Recovering/Resolving]
  - Dysarthria [Recovering/Resolving]
  - Tremor [Recovering/Resolving]
